FAERS Safety Report 8211211-1 (Version None)
Quarter: 2012Q1

REPORT INFORMATION
  Report Type: 
  Country: None (occurrence: None)
  Receive Date: 20120315
  Receipt Date: 20120307
  Transmission Date: 20120608
  Serious: Yes (Hospitalization)
  Sender: FDA-Public Use
  Company Number: US-US-EMD SERONO, INC.-7118110

PATIENT
  Sex: Female

DRUGS (4)
  1. REBIF [Suspect]
     Indication: MULTIPLE SCLEROSIS
     Route: 058
     Dates: start: 20110203
  2. BACLOFEN [Concomitant]
     Indication: PREMEDICATION
  3. BLOOD PRESSURE PILLS [Concomitant]
     Indication: BLOOD PRESSURE ABNORMAL
  4. NAPROXEN [Concomitant]
     Indication: PREMEDICATION

REACTIONS (8)
  - HYPOTENSION [None]
  - MULTIPLE SCLEROSIS RELAPSE [None]
  - INJECTION SITE PAIN [None]
  - FALL [None]
  - WEIGHT INCREASED [None]
  - DEPRESSION [None]
  - BLOOD PRESSURE ABNORMAL [None]
  - LOWER LIMB FRACTURE [None]
